FAERS Safety Report 5720717-6 (Version None)
Quarter: 2008Q2

REPORT INFORMATION
  Report Type: 
  Country: None (occurrence: None)
  Receive Date: 20080425
  Receipt Date: 20080425
  Transmission Date: 20081010
  Serious: No
  Sender: FDA-Public Use
  Company Number: None

PATIENT
  Age: 54 Year
  Sex: Female

DRUGS (1)
  1. ISOSULFAN BLUE/POTASSIUM PHOSPHATE/SODIUM PHOSPHATE [Suspect]
     Dates: start: 20070308, end: 20070308

REACTIONS (2)
  - ANGIOEDEMA [None]
  - HYPOTENSION [None]
